FAERS Safety Report 8805821 (Version 1)
Quarter: 2012Q4

REPORT INFORMATION
  Report Type: Spontaneous
  Country: US (occurrence: None)
  Receive Date: 20120919
  Receipt Date: 20120919
  Transmission Date: 20130627
  Serious: No
  Sender: FDA-Public Use
  Company Number: None

PATIENT

DRUGS (2)
  1. NOVOLOG MIX 70/30 [Suspect]
     Dosage: Novolog  mix 70/30 flexpens
  2. NOVOLOG FLEXPEN [Suspect]
     Dosage: Novolog Flexpens

REACTIONS (3)
  - Drug dispensing error [None]
  - Wrong drug administered [None]
  - Product name confusion [None]
